FAERS Safety Report 24594511 (Version 1)
Quarter: 2024Q4

REPORT INFORMATION
  Report Type: Spontaneous
  Country: US (occurrence: US)
  Receive Date: 20241108
  Receipt Date: 20241108
  Transmission Date: 20250115
  Serious: Yes (Hospitalization)
  Sender: AMGEN
  Company Number: US-AMGEN-USASP2024218082

PATIENT
  Sex: Male

DRUGS (2)
  1. REPATHA [Suspect]
     Active Substance: EVOLOCUMAB
     Indication: Hypercholesterolaemia
     Dosage: 140 MILLIGRAM, Q2WK
     Route: 058
     Dates: start: 202405
  2. REPATHA [Suspect]
     Active Substance: EVOLOCUMAB
     Dosage: UNK (DOSE REDUCED)
     Route: 058

REACTIONS (3)
  - Cough [Recovered/Resolved with Sequelae]
  - Oropharyngeal pain [Recovered/Resolved with Sequelae]
  - Influenza like illness [Recovered/Resolved with Sequelae]

NARRATIVE: CASE EVENT DATE: 20240101
